FAERS Safety Report 9282817 (Version 3)
Quarter: 2013Q3

REPORT INFORMATION
  Report Type: Spontaneous
  Country: GB (occurrence: GB)
  Receive Date: 20130510
  Receipt Date: 20130725
  Transmission Date: 20140515
  Serious: No
  Sender: FDA-Public Use
  Company Number: GB-AMGEN-GBRSP2013032911

PATIENT
  Age: 56 Year
  Sex: Female

DRUGS (4)
  1. ENBREL [Suspect]
     Indication: RHEUMATOID ARTHRITIS
     Dosage: 50 MG, WEEKLY
     Route: 058
     Dates: start: 200711
  2. METHOTREXATE [Concomitant]
     Dosage: 7.5 MG, UNK
  3. FOLIC ACID [Concomitant]
     Dosage: 5 MG, UNK
  4. BENDROFLUAZIDE [Concomitant]
     Dosage: 2.5 MG, UNK

REACTIONS (2)
  - Foot deformity [Unknown]
  - Pain in extremity [Unknown]
